FAERS Safety Report 12859227 (Version 1)
Quarter: 2016Q4

REPORT INFORMATION
  Report Type: Spontaneous
  Country: US (occurrence: US)
  Receive Date: 20161018
  Receipt Date: 20161018
  Transmission Date: 20170207
  Serious: No
  Sender: FDA-Public Use
  Company Number: US-NOVOPROD-506439

PATIENT
  Age: 68 Year
  Sex: Female
  Weight: 70.3 kg

DRUGS (2)
  1. TRESIBA [Suspect]
     Active Substance: INSULIN DEGLUDEC
     Indication: TYPE 1 DIABETES MELLITUS
     Dosage: 25 U, QD
     Route: 058
     Dates: start: 201607, end: 2016
  2. TRESIBA [Suspect]
     Active Substance: INSULIN DEGLUDEC
     Dosage: 18 U, QD
     Route: 058
     Dates: start: 2016, end: 20160802

REACTIONS (6)
  - Headache [Recovered/Resolved]
  - Asthenia [Recovered/Resolved]
  - Rash pruritic [Recovering/Resolving]
  - Vision blurred [Recovered/Resolved]
  - Back pain [Recovering/Resolving]
  - Nausea [Recovered/Resolved]

NARRATIVE: CASE EVENT DATE: 201607
